FAERS Safety Report 6110273-5 (Version None)
Quarter: 2009Q1

REPORT INFORMATION
  Report Type: 
  Country: None (occurrence: None)
  Receive Date: 20090310
  Receipt Date: 20090303
  Transmission Date: 20090719
  Serious: Yes (Other)
  Sender: FDA-Public Use
  Company Number: DE-ASTRAZENECA-2009PK00720

PATIENT
  Age: 69 Year
  Sex: Female

DRUGS (3)
  1. FASLODEX [Suspect]
     Indication: BREAST CANCER METASTATIC
     Route: 030
     Dates: start: 20070901, end: 20090101
  2. FASLODEX [Suspect]
     Route: 030
     Dates: start: 20090301
  3. LEKTINOL [Concomitant]

REACTIONS (1)
  - PERICARDIAL EFFUSION [None]
